FAERS Safety Report 8577456-6 (Version None)
Quarter: 2012Q3

REPORT INFORMATION
  Report Type: 
  Country: None (occurrence: None)
  Receive Date: 20120807
  Receipt Date: 20120806
  Transmission Date: 20120928
  Serious: Yes (Death)
  Sender: FDA-Public Use
  Company Number: PHHY2012IN067579

PATIENT

DRUGS (1)
  1. DICLOFENAC SODIUM [Suspect]
     Route: 064

REACTIONS (3)
  - HYPERKALAEMIA [None]
  - NEONATAL ANURIA [None]
  - PERITONITIS [None]
